FAERS Safety Report 8460046-3 (Version None)
Quarter: 2012Q2

REPORT INFORMATION
  Report Type: 
  Country: None (occurrence: None)
  Receive Date: 20120622
  Receipt Date: 20120622
  Transmission Date: 20120825
  Serious: Yes (Hospitalization, Other)
  Sender: FDA-Public Use
  Company Number: US-PFIZER INC-2011022890

PATIENT
  Age: 69 Year
  Sex: Female

DRUGS (4)
  1. ESOMEPRAZOLE [Concomitant]
     Dosage: 10 MG, 1X/DAY
  2. FERROUS SULFATE [Concomitant]
  3. VERAPAMIL HCL [Suspect]
     Dosage: 120 MG, 1X/DAY
  4. HYDRALAZINE [Concomitant]
     Dosage: 25 MG, 2X/DAY

REACTIONS (6)
  - PRESYNCOPE [None]
  - ASTHENIA [None]
  - CONFUSIONAL STATE [None]
  - BRADYCARDIA [None]
  - ATRIOVENTRICULAR BLOCK COMPLETE [None]
  - HYPOTENSION [None]
